FAERS Safety Report 4397294-8 (Version None)
Quarter: 2004Q2

REPORT INFORMATION
  Report Type: 
  Country: None (occurrence: None)
  Receive Date: 20040621
  Receipt Date: 20040216
  Transmission Date: 20050107
  Serious: Yes (Other)
  Sender: FDA-Public Use
  Company Number: USA-2004-0013214

PATIENT
  Age: 21 Year
  Sex: Male
  Weight: 68 kg

DRUGS (4)
  1. OXYCONTIN [Suspect]
  2. VICODIN [Suspect]
  3. VALIUM [Suspect]
  4. SOMA [Suspect]

REACTIONS (1)
  - DRUG ABUSER [None]
